FAERS Safety Report 21862075 (Version 3)
Quarter: 2024Q3

REPORT INFORMATION
  Report Type: Report from Study
  Country: BR (occurrence: BR)
  Receive Date: 20230113
  Receipt Date: 20240710
  Transmission Date: 20241016
  Serious: Yes (Other)
  Sender: CELLTRION
  Company Number: BR-CELLTRION INC.-2023BR000457

PATIENT

DRUGS (18)
  1. INFLIXIMAB [Suspect]
     Active Substance: INFLIXIMAB
     Indication: Rheumatoid arthritis
     Dosage: 3 AMPOULES EVERY 2 MONTHS, AND THAT HER FIRST TWO INFUSIONS WERE 15 DAYS APART
     Route: 042
     Dates: start: 2022
  2. INFLIXIMAB [Suspect]
     Active Substance: INFLIXIMAB
     Dosage: 3 AMPOULES EVERY 2 MONTHS, AND THAT HER FIRST TWO INFUSIONS WERE 15 DAYS APART
     Route: 042
     Dates: start: 2022
  3. INFLIXIMAB [Suspect]
     Active Substance: INFLIXIMAB
     Dosage: UNK
     Dates: start: 20230106
  4. HYDROCHLOROTHIAZIDE [Concomitant]
     Active Substance: HYDROCHLOROTHIAZIDE
     Indication: Hypertension
     Dosage: 1 PILL/DAYSTART: 15 YEARS AGO
     Route: 048
  5. LOSARTAN [Concomitant]
     Active Substance: LOSARTAN
     Indication: Hypertension
     Dosage: 2 PILL/DAY START: 15 YEARS AGO
     Route: 048
  6. ASPIRIN [Concomitant]
     Active Substance: ASPIRIN
     Indication: Hypertension
     Dosage: 1 PILL/DAY START: 15 YEARS AGO
     Route: 048
  7. METHOTREXATE SODIUM [Concomitant]
     Active Substance: METHOTREXATE SODIUM
     Indication: Rheumatoid arthritis
     Dosage: 1 PILL/WEEK
     Route: 048
     Dates: start: 202206
  8. TRAMADOL [Concomitant]
     Active Substance: TRAMADOL\TRAMADOL HYDROCHLORIDE
     Route: 042
  9. DEXAMETHASONE [Concomitant]
     Active Substance: DEXAMETHASONE
     Route: 042
  10. DICLOFENAC POTASSIUM [Concomitant]
     Active Substance: DICLOFENAC POTASSIUM
     Route: 042
  11. PREDNISOLONE [Concomitant]
     Active Substance: PREDNISOLONE
     Dosage: COMBINATION OF PREDNISOLONE, DULOXETINE, FOLIC ACID, ACETAMINOPHEN, 2 PILLS A DAY
  12. DULOXETINE [Concomitant]
     Active Substance: DULOXETINE
     Dosage: COMBINATION OF PREDNISOLONE, DULOXETINE, FOLIC ACID, ACETAMINOPHEN, 2 PILLS A DAY
  13. FOLIC ACID [Concomitant]
     Active Substance: FOLIC ACID
     Dosage: COMBINATION OF PREDNISOLONE, DULOXETINE, FOLIC ACID, ACETAMINOPHEN, 2 PILLS A DAY
  14. ACETAMINOPHEN [Concomitant]
     Active Substance: ACETAMINOPHEN
     Dosage: COMBINATION OF PREDNISOLONE, DULOXETINE, FOLIC ACID, ACETAMINOPHEN, 2 PILLS A DAY
  15. GABAPENTIN [Concomitant]
     Active Substance: GABAPENTIN
     Indication: Fibromyalgia
     Dosage: COMBINATION OF GABAPENTIN, PARACETAMOL, CYCLOBENZAPRINE AND FAMOTIDINE, 1 PILL A DAY
  16. ACETAMINOPHEN [Concomitant]
     Active Substance: ACETAMINOPHEN
     Indication: Fibromyalgia
     Dosage: COMBINATION OF GABAPENTIN, PARACETAMOL, CYCLOBENZAPRINE AND FAMOTIDINE, 1 PILL A DAY
  17. CYCLOBENZAPRINE [Concomitant]
     Active Substance: CYCLOBENZAPRINE
     Indication: Fibromyalgia
     Dosage: COMBINATION OF GABAPENTIN, PARACETAMOL, CYCLOBENZAPRINE AND FAMOTIDINE, 1 PILL A DAY
  18. FAMOTIDINE [Concomitant]
     Active Substance: FAMOTIDINE
     Indication: Fibromyalgia
     Dosage: COMBINATION OF GABAPENTIN, PARACETAMOL, CYCLOBENZAPRINE AND FAMOTIDINE, 1 PILL A DAY

REACTIONS (10)
  - Pain in extremity [Unknown]
  - Arthralgia [Unknown]
  - Furuncle [Unknown]
  - Viral infection [Recovered/Resolved with Sequelae]
  - Sinusitis [Unknown]
  - Influenza [Unknown]
  - Somnolence [Unknown]
  - Nausea [Unknown]
  - Intentional dose omission [Unknown]
  - Intentional product use issue [Unknown]

NARRATIVE: CASE EVENT DATE: 20220101
